FAERS Safety Report 8607866 (Version 2)
Quarter: 2012Q4

REPORT INFORMATION
  Report Type: 
  Country: US (occurrence: US)
  Receive Date: 20120611
  Receipt Date: 20120829
  Transmission Date: 20130627
  Serious: Yes (Other)
  Sender: FDA-Public Use
  Company Number: US-SANOFI-AVENTIS-2012SA038306

PATIENT
  Sex: Male

DRUGS (2)
  1. PLAVIX [Suspect]
     Indication: VASCULAR OCCLUSION
     Dates: start: 2005, end: 2011
  2. AVALIDE [Suspect]

REACTIONS (3)
  - Coronary artery occlusion [Unknown]
  - Condition aggravated [Unknown]
  - Myocardial infarction [Unknown]
